FAERS Safety Report 16693455 (Version 1)
Quarter: 2019Q3

REPORT INFORMATION
  Report Type: Spontaneous
  Country: NL (occurrence: NL)
  Receive Date: 20190812
  Receipt Date: 20190812
  Transmission Date: 20191004
  Serious: Yes (Congenital Anomaly)
  Sender: FDA-Public Use
  Company Number: PHHY2019NL182469

PATIENT
  Sex: Male
  Weight: 4 kg

DRUGS (2)
  1. MICROGYNON [Suspect]
     Active Substance: ETHINYL ESTRADIOL\LEVONORGESTREL ACETATE
     Indication: FOETAL EXPOSURE DURING PREGNANCY
     Dosage: MATERNAL DOSE: 1 DF, UNK (GEBRUIKELIJKE 3WK 1DD, 1 WK MED-VRIJ) (30/150UG)
     Route: 064
  2. RITALINE [Suspect]
     Active Substance: METHYLPHENIDATE HYDROCHLORIDE
     Indication: FOETAL EXPOSURE DURING PREGNANCY
     Dosage: MATERNAL DOSE: 10 MG, Q8H (3DD 10 MG)
     Route: 064

REACTIONS (3)
  - Maternal exposure during pregnancy [Unknown]
  - Pregnancy on oral contraceptive [Unknown]
  - Hypospadias [Not Recovered/Not Resolved]

NARRATIVE: CASE EVENT DATE: 20190520
